FAERS Safety Report 21632073 (Version 1)
Quarter: 2022Q4

REPORT INFORMATION
  Report Type: Spontaneous
  Country: US (occurrence: US)
  Receive Date: 20221123
  Receipt Date: 20221123
  Transmission Date: 20230112
  Serious: Yes (Hospitalization)
  Sender: FDA-Public Use
  Company Number: US-SANOFI-01370149

PATIENT
  Age: 40 Year

DRUGS (1)
  1. AUBAGIO [Suspect]
     Active Substance: TERIFLUNOMIDE
     Indication: Multiple sclerosis
     Dosage: DRUG TREATMENT DURATION:ON FOR 3 MONTHS. STOP: ONE MONTH BEFORE HOSPITALIZATION.

REACTIONS (1)
  - Hepatic enzyme increased [Unknown]
